FAERS Safety Report 9409710 (Version 2)
Quarter: 2013Q3

REPORT INFORMATION
  Report Type: Report from Study
  Country: NL (occurrence: NL)
  Receive Date: 20130719
  Receipt Date: 20130808
  Transmission Date: 20140515
  Serious: Yes (Other)
  Sender: FDA-Public Use
  Company Number: PHHY2013NL076181

PATIENT
  Age: 78 Year
  Sex: Male

DRUGS (9)
  1. ZOMETA [Suspect]
     Indication: PROSTATE CANCER METASTATIC
     Dosage: 4 MG/100 ML, ONCE EVERY FOUR WEEK
     Route: 042
  2. ZOMETA [Suspect]
     Dosage: 4 MG/100 ML, ONCE EVERY FOUR WEEK
     Route: 042
     Dates: start: 20100128
  3. ZOMETA [Suspect]
     Dosage: 4 MG/100 ML, ONCE EVERY FOUR WEEK
     Route: 042
     Dates: start: 20130619
  4. ZOMETA [Suspect]
     Dosage: 4 MG/100 ML, ONCE EVERY FOUR WEEK
     Route: 042
     Dates: start: 20130717
  5. ANANDRON [Concomitant]
     Dosage: UNK UKN, UNK
  6. BISOPROLOL [Concomitant]
     Dosage: UNK UKN, UNK
  7. IRBESARTAN [Concomitant]
     Dosage: UNK UKN, UNK
  8. AVODART [Concomitant]
     Dosage: UNK UKN, UNK
  9. CALCICHEW [Concomitant]
     Dosage: UNK UKN, UNK

REACTIONS (1)
  - Osteonecrosis of jaw [Unknown]
